FAERS Safety Report 5690599-X (Version None)
Quarter: 2008Q1

REPORT INFORMATION
  Report Type: 
  Country: None (occurrence: None)
  Receive Date: 20080331
  Receipt Date: 20080331
  Transmission Date: 20080703
  Serious: Yes (Hospitalization)
  Sender: FDA-Public Use
  Company Number: None

PATIENT
  Sex: Male
  Weight: 70.3075 kg

DRUGS (1)
  1. ZICAM MATRIXX INITIATIVES, INC [Suspect]
     Indication: NASOPHARYNGITIS
     Dosage: 1 TUBE Q4H ENDOSINUSIAL 1 TIME
     Route: 006
     Dates: start: 20080327, end: 20080327

REACTIONS (1)
  - EPISTAXIS [None]
